FAERS Safety Report 17550638 (Version 1)
Quarter: 2020Q1

REPORT INFORMATION
  Report Type: Spontaneous
  Country: GB (occurrence: GB)
  Receive Date: 20200317
  Receipt Date: 20200317
  Transmission Date: 20200409
  Serious: Yes (Other)
  Sender: FDA-Public Use
  Company Number: GB-SA-2020SA063554

PATIENT
  Age: 51 Year
  Sex: Male

DRUGS (4)
  1. IKERVIS [Concomitant]
     Active Substance: CYCLOSPORINE
  2. FOLIC ACID. [Concomitant]
     Active Substance: FOLIC ACID
  3. DUPILUMAB [Suspect]
     Active Substance: DUPILUMAB
     Indication: DERMATITIS ATOPIC
     Dosage: 300 MG, QOW
     Route: 058
     Dates: start: 20181001, end: 20181201
  4. METHOTREXATE. [Concomitant]
     Active Substance: METHOTREXATE

REACTIONS (4)
  - Eczema eyelids [Recovered/Resolved with Sequelae]
  - Eczema [Unknown]
  - Cellulitis [Unknown]
  - Conjunctivitis [Recovered/Resolved with Sequelae]

NARRATIVE: CASE EVENT DATE: 20181020
